FAERS Safety Report 9230997 (Version 1)
Quarter: 2013Q2

REPORT INFORMATION
  Report Type: Report from Study
  Country: US (occurrence: US)
  Receive Date: 20130415
  Receipt Date: 20130415
  Transmission Date: 20140414
  Serious: Yes (Other)
  Sender: FDA-Public Use
  Company Number: US-ROCHE-1213279

PATIENT
  Age: 61 Year
  Sex: Male
  Weight: 87.17 kg

DRUGS (1)
  1. AVASTIN [Suspect]
     Indication: NON-SMALL CELL LUNG CANCER
     Route: 042
     Dates: start: 20130117

REACTIONS (3)
  - Diplopia [Recovered/Resolved]
  - Thrombosis [Not Recovered/Not Resolved]
  - Platelet count decreased [Recovered/Resolved]
